FAERS Safety Report 17285112 (Version 1)
Quarter: 2020Q1

REPORT INFORMATION
  Report Type: Spontaneous
  Country: US (occurrence: US)
  Receive Date: 20200117
  Receipt Date: 20200117
  Transmission Date: 20200409
  Serious: No
  Sender: FDA-Public Use
  Company Number: US-TARO-2019TAR00586

PATIENT
  Sex: Male

DRUGS (1)
  1. KETOCONAZOLE CREAM 2% [Suspect]
     Active Substance: KETOCONAZOLE
     Indication: INFECTION
     Route: 061

REACTIONS (2)
  - Furuncle [Unknown]
  - Pain [Unknown]
